FAERS Safety Report 7994846-0 (Version None)
Quarter: 2011Q4

REPORT INFORMATION
  Report Type: 
  Country: None (occurrence: None)
  Receive Date: 20111220
  Receipt Date: 20111215
  Transmission Date: 20120403
  Serious: Yes (Other)
  Sender: FDA-Public Use
  Company Number: US-BAYER-2011-121613

PATIENT

DRUGS (1)
  1. MAGNEVIST [Suspect]

REACTIONS (1)
  - CONTRAST MEDIA REACTION [None]
